FAERS Safety Report 5615465-7 (Version None)
Quarter: 2008Q1

REPORT INFORMATION
  Report Type: 
  Country: None (occurrence: None)
  Receive Date: 20080206
  Receipt Date: 20080123
  Transmission Date: 20080703
  Serious: Yes (Other)
  Sender: FDA-Public Use
  Company Number: US-AMGEN-QUU260162

PATIENT
  Sex: Female
  Weight: 84 kg

DRUGS (14)
  1. ARANESP [Suspect]
     Indication: RENAL FAILURE CHRONIC
     Route: 058
     Dates: start: 20071002, end: 20071002
  2. AVAPRO [Concomitant]
  3. ZOCOR [Concomitant]
  4. NITROGLYCERIN [Concomitant]
  5. PROPRANOLOL [Concomitant]
  6. TRICOR [Concomitant]
  7. DARVOCET-N 100 [Concomitant]
  8. ULTRAM [Concomitant]
  9. PROTONIX [Concomitant]
  10. LANTUS [Concomitant]
  11. ASPIRIN [Concomitant]
  12. GLUCOSAMINE [Concomitant]
  13. VITAMIN E [Concomitant]
  14. VITAMIN B-12 [Concomitant]

REACTIONS (4)
  - BLOOD CREATININE INCREASED [None]
  - DYSPNOEA [None]
  - HYPERSENSITIVITY [None]
  - URTICARIA [None]
